FAERS Safety Report 4798941-9 (Version None)
Quarter: 2005Q4

REPORT INFORMATION
  Report Type: 
  Country: None (occurrence: None)
  Receive Date: 20051014
  Receipt Date: 20050915
  Transmission Date: 20060501
  Serious: Yes (Other)
  Sender: FDA-Public Use
  Company Number: US-AMGEN-US150406

PATIENT
  Sex: Female

DRUGS (1)
  1. ENBREL [Suspect]
     Indication: PSORIASIS
     Dates: start: 20050501, end: 20050905

REACTIONS (7)
  - CONDITION AGGRAVATED [None]
  - COUGH [None]
  - HAEMOPTYSIS [None]
  - PAIN IN EXTREMITY [None]
  - PSORIASIS [None]
  - PULMONARY HILUM MASS [None]
  - RED BLOOD CELL SEDIMENTATION RATE INCREASED [None]
